FAERS Safety Report 10447983 (Version 1)
Quarter: 2014Q3

REPORT INFORMATION
  Report Type: Spontaneous
  Country: US (occurrence: US)
  Receive Date: 20140911
  Receipt Date: 20140911
  Transmission Date: 20150326
  Serious: Yes (Other)
  Sender: FDA-Public Use
  Company Number: US-PFIZER INC-2014247981

PATIENT
  Age: 30 Year
  Sex: Male

DRUGS (2)
  1. NAPROXEN SODIUM. [Suspect]
     Active Substance: NAPROXEN SODIUM
     Indication: JOINT INJURY
     Dosage: UNK
  2. CLINDAMYCIN HCL [Suspect]
     Active Substance: CLINDAMYCIN HYDROCHLORIDE
     Indication: JOINT INJURY
     Dosage: UNK

REACTIONS (8)
  - Constipation [Unknown]
  - Decreased appetite [Unknown]
  - Dyspepsia [Unknown]
  - Renal failure acute [Unknown]
  - Nausea [Unknown]
  - Irritability [Unknown]
  - Thirst [Unknown]
  - Vomiting [Unknown]
